FAERS Safety Report 4286291-9 (Version None)
Quarter: 2004Q1

REPORT INFORMATION
  Report Type: 
  Country: None (occurrence: None)
  Receive Date: 20040129
  Receipt Date: 20031006
  Transmission Date: 20041129
  Serious: Yes (Hospitalization, Disabling)
  Sender: FDA-Public Use
  Company Number: A001-002-005818

PATIENT
  Age: 86 Year
  Sex: Female
  Weight: 66 kg

DRUGS (6)
  1. ARICEPT [Suspect]
     Indication: DEMENTIA
     Dosage: 5 MG, 1 IN 1 D, ORAL
     Route: 048
     Dates: start: 20030718, end: 20030925
  2. VERAPAMIL [Concomitant]
  3. LANOXIN [Concomitant]
  4. HYZAAR [Concomitant]
  5. COUMADIN [Concomitant]
  6. BACTRIM DS [Concomitant]

REACTIONS (3)
  - ASTHENIA [None]
  - CONFUSIONAL STATE [None]
  - HYPONATRAEMIA [None]
